FAERS Safety Report 18215445 (Version 1)
Quarter: 2020Q3

REPORT INFORMATION
  Report Type: Spontaneous
  Country: US (occurrence: US)
  Receive Date: 20200901
  Receipt Date: 20200901
  Transmission Date: 20201103
  Serious: No
  Sender: FDA-Public Use
  Company Number: US-GLENMARK PHARMACEUTICALS-2019GMK043453

PATIENT

DRUGS (7)
  1. TRIAMCINOLONE ACETONIDE CREAM USP [Suspect]
     Active Substance: TRIAMCINOLONE ACETONIDE
     Indication: ACNE
  2. TRIAMCINOLONE ACETONIDE CREAM USP [Suspect]
     Active Substance: TRIAMCINOLONE ACETONIDE
     Indication: RASH ERYTHEMATOUS
  3. MULTIVITAMINS [Concomitant]
     Active Substance: VITAMINS
     Indication: PRODUCT USED FOR UNKNOWN INDICATION
     Dosage: UNK UNK, QW (EVERY WEDNESDAY)
     Route: 065
  4. TRIAMCINOLONE ACETONIDE CREAM USP [Suspect]
     Active Substance: TRIAMCINOLONE ACETONIDE
     Indication: SWELLING
  5. TRIAMCINOLONE ACETONIDE CREAM USP [Suspect]
     Active Substance: TRIAMCINOLONE ACETONIDE
     Indication: RASH PRURITIC
     Dosage: UNK, BID (TWICE DAILY)
     Route: 061
     Dates: start: 20190918, end: 20191002
  6. DOLOFEN                            /00109201/ [Concomitant]
     Indication: HYPERTENSION
     Dosage: UNK
     Route: 065
  7. TRIAMCINOLONE ACETONIDE CREAM USP [Suspect]
     Active Substance: TRIAMCINOLONE ACETONIDE
     Indication: SCAB

REACTIONS (1)
  - Therapeutic product effect incomplete [Unknown]

NARRATIVE: CASE EVENT DATE: 201909
